FAERS Safety Report 14445556 (Version 3)
Quarter: 2018Q4

REPORT INFORMATION
  Report Type: Spontaneous
  Country: JP (occurrence: JP)
  Receive Date: 20180126
  Receipt Date: 20181010
  Transmission Date: 20190204
  Serious: Yes (Death, Hospitalization)
  Sender: FDA-Public Use
  Company Number: JP-009507513-1801JPN001906J

PATIENT
  Age: 66 Year
  Sex: Male
  Weight: 52 kg

DRUGS (12)
  1. BAKTAR [Concomitant]
     Active Substance: SULFAMETHOXAZOLE\TRIMETHOPRIM
     Dosage: 1 DF, QD
     Route: 048
     Dates: start: 20180109
  2. RINDERON V [Concomitant]
     Active Substance: BETAMETHASONE VALERATE
     Dosage: 4 MG, UNK
     Route: 051
     Dates: start: 20180109, end: 20180109
  3. GLYCEOL [Concomitant]
     Active Substance: GLYCERIN
     Dosage: 200 ML, UNK
     Route: 051
     Dates: start: 20180109, end: 20180116
  4. E KEPPRA [Concomitant]
     Active Substance: LEVETIRACETAM
     Dosage: 1000 MG, BID
     Route: 048
     Dates: start: 20180109
  5. OFEV [Concomitant]
     Active Substance: NINTEDANIB
     Dosage: 200 MG, BID
     Route: 048
     Dates: start: 20180110
  6. SODIUM CHLORIDE. [Concomitant]
     Active Substance: SODIUM CHLORIDE
     Dosage: 50 ML, UNK
     Route: 051
     Dates: start: 20180112, end: 20180112
  7. NEXIUM [Concomitant]
     Active Substance: ESOMEPRAZOLE MAGNESIUM
     Dosage: 20 MG, QD
     Route: 048
     Dates: start: 20180109
  8. LOXOPROFEN NA [Concomitant]
     Active Substance: LOXOPROFEN SODIUM
     Dosage: 60 MG, PRN
     Route: 048
     Dates: start: 20180118, end: 20180118
  9. SODIUM CHLORIDE. [Concomitant]
     Active Substance: SODIUM CHLORIDE
     Dosage: 100 ML, UNK
     Route: 051
     Dates: start: 20180109, end: 20180116
  10. KEYTRUDA [Suspect]
     Active Substance: PEMBROLIZUMAB
     Indication: LUNG ADENOCARCINOMA
     Dosage: 200 MG, Q3W
     Route: 041
     Dates: start: 20180112, end: 20180112
  11. PREDNISOLONE. [Concomitant]
     Active Substance: PREDNISOLONE
     Indication: LUNG NEOPLASM MALIGNANT
     Route: 065
  12. RINDERON V [Concomitant]
     Active Substance: BETAMETHASONE VALERATE
     Dosage: 2 MG, UNK
     Route: 051
     Dates: start: 20180110, end: 20180116

REACTIONS (1)
  - Lung disorder [Fatal]

NARRATIVE: CASE EVENT DATE: 20180118
